FAERS Safety Report 8220970-3 (Version None)
Quarter: 2012Q1

REPORT INFORMATION
  Report Type: 
  Country: None (occurrence: None)
  Receive Date: 20120320
  Receipt Date: 20120312
  Transmission Date: 20120608
  Serious: Yes (Death, Hospitalization)
  Sender: FDA-Public Use
  Company Number: IT-CELGENEUS-083-21880-11072018

PATIENT
  Sex: Female

DRUGS (3)
  1. RITUXIMAB [Concomitant]
     Indication: DIFFUSE LARGE B-CELL LYMPHOMA
     Route: 065
     Dates: start: 20110411
  2. REVLIMID [Suspect]
     Indication: NON-HODGKIN'S LYMPHOMA
     Dosage: 20 MILLIGRAM
     Route: 048
     Dates: start: 20110427, end: 20110628
  3. REVLIMID [Suspect]
     Indication: DIFFUSE LARGE B-CELL LYMPHOMA

REACTIONS (5)
  - HYPOXIA [None]
  - HYPERCAPNIA [None]
  - METABOLIC ACIDOSIS [None]
  - PYREXIA [None]
  - DYSPNOEA [None]
